FAERS Safety Report 23428930 (Version 1)
Quarter: 2024Q1

REPORT INFORMATION
  Report Type: Spontaneous
  Country: DE (occurrence: DE)
  Receive Date: 20240122
  Receipt Date: 20240122
  Transmission Date: 20240410
  Serious: Yes (Hospitalization)
  Sender: FDA-Public Use
  Company Number: DE-BAYER-2024A011833

PATIENT
  Age: 79 Year
  Sex: Female

DRUGS (1)
  1. ULTRAVIST [Suspect]
     Active Substance: IOPROMIDE
     Indication: Whole body scan
     Dosage: 2 ML, ONCE
     Route: 042
     Dates: start: 20240110, end: 20240110

REACTIONS (3)
  - Oxygen saturation decreased [Not Recovered/Not Resolved]
  - Dyspnoea [Not Recovered/Not Resolved]
  - Lip erythema [Not Recovered/Not Resolved]

NARRATIVE: CASE EVENT DATE: 20240110
